FAERS Safety Report 6321902-5 (Version None)
Quarter: 2009Q3

REPORT INFORMATION
  Report Type: 
  Country: None (occurrence: None)
  Receive Date: 20090812
  Receipt Date: 20090707
  Transmission Date: 20100115
  Serious: No
  Sender: FDA-Public Use
  Company Number: WAES 0907USA00990

PATIENT
  Age: 47 Year
  Sex: Male

DRUGS (3)
  1. ISENTRESS [Suspect]
     Dosage: 400 MICROGM/BID/PO
     Route: 048
     Dates: start: 20090701, end: 20090708
  2. EPIVIR [Concomitant]
  3. VIREAD [Concomitant]

REACTIONS (7)
  - ADVERSE DRUG REACTION [None]
  - DISTURBANCE IN ATTENTION [None]
  - HEART RATE INCREASED [None]
  - INSOMNIA [None]
  - MEMORY IMPAIRMENT [None]
  - NERVOUSNESS [None]
  - PAIN [None]
